FAERS Safety Report 11101057 (Version 8)
Quarter: 2015Q4

REPORT INFORMATION
  Report Type: Report from Study
  Country: US (occurrence: US)
  Receive Date: 20150508
  Receipt Date: 20151015
  Transmission Date: 20160304
  Serious: Yes (Hospitalization, Other)
  Sender: FDA-Public Use
  Company Number: US-SA-2015SA053987

PATIENT
  Age: 52 Year
  Sex: Male

DRUGS (2)
  1. ACETYLSALICYLIC ACID [Concomitant]
     Active Substance: ASPIRIN
  2. AUBAGIO [Suspect]
     Active Substance: TERIFLUNOMIDE
     Indication: RELAPSING-REMITTING MULTIPLE SCLEROSIS
     Route: 048
     Dates: start: 20150410

REACTIONS (15)
  - Deafness [Recovered/Resolved]
  - Laboratory test abnormal [Unknown]
  - Urticaria [Unknown]
  - Visual impairment [Unknown]
  - Rash pruritic [Unknown]
  - Headache [Unknown]
  - Alopecia [Unknown]
  - Hypersomnia [Unknown]
  - Weight increased [Unknown]
  - Aphasia [Unknown]
  - Diarrhoea [Unknown]
  - Paraesthesia [Unknown]
  - Migraine [Unknown]
  - Tinnitus [Unknown]
  - Speech disorder [Unknown]

NARRATIVE: CASE EVENT DATE: 2015
